FAERS Safety Report 18495576 (Version 2)
Quarter: 2020Q4

REPORT INFORMATION
  Report Type: Report from Study
  Country: CA (occurrence: CA)
  Receive Date: 20201112
  Receipt Date: 20201118
  Transmission Date: 20210114
  Serious: Yes (Other)
  Sender: FDA-Public Use
  Company Number: CA-TAKEDA-2020TUS042874

PATIENT
  Age: 75 Year
  Sex: Female

DRUGS (4)
  1. MELOXICAM. [Concomitant]
     Active Substance: MELOXICAM
     Dosage: UNK
  2. VEDOLIZUMAB [Suspect]
     Active Substance: VEDOLIZUMAB
     Indication: COLITIS ULCERATIVE
     Dosage: 300 MILLIGRAM
     Route: 042
     Dates: start: 20200521
  3. ELTROXIN [Concomitant]
     Active Substance: LEVOTHYROXINE
     Dosage: UNK
  4. PERINDOPRIL [Concomitant]
     Active Substance: PERINDOPRIL
     Dosage: UNK

REACTIONS (1)
  - Colitis ulcerative [Not Recovered/Not Resolved]
